FAERS Safety Report 11543404 (Version 1)
Quarter: 2015Q3

REPORT INFORMATION
  Report Type: Spontaneous
  Country: US (occurrence: US)
  Receive Date: 20150923
  Receipt Date: 20150923
  Transmission Date: 20151125
  Serious: Yes (Other)
  Sender: FDA-Public Use
  Company Number: US-PFIZER INC-2015315982

PATIENT
  Age: 64 Year
  Sex: Female
  Weight: 88.44 kg

DRUGS (16)
  1. PAROXETINE [Concomitant]
     Active Substance: PAROXETINE\PAROXETINE HYDROCHLORIDE
     Dosage: 40 MG, 1X/DAY (AT BER TIME)
     Route: 048
  2. SUCRALFATE. [Concomitant]
     Active Substance: SUCRALFATE
     Indication: ABDOMINAL DISCOMFORT
     Dosage: 1 G, 3X/DAY
  3. IRON PLUS VITAMIN C [Concomitant]
     Indication: BLOOD DISORDER
     Dosage: 60 MG, 1X/DAY
     Route: 048
  4. MICRONIZED HCL [Concomitant]
     Dosage: 1 G, 3X/DAY (AS NEEDED )
  5. TRIAMT/HCTZ [Concomitant]
     Active Substance: HYDROCHLOROTHIAZIDE\TRIAMTERENE
     Indication: SWELLING
     Dosage: (HYDROCHLOROTHIAZIDE 37.5 MG, TRIAMTERENE 251 MG)AS NEEDED
     Route: 048
  6. GLIMEPIRIDE. [Concomitant]
     Active Substance: GLIMEPIRIDE
     Dosage: 2 MG, 2X/DAY (ONE BEFORE BREAKFAST AND ONE BEFORE SUPPER)
  7. NYSTATIN. [Concomitant]
     Active Substance: NYSTATIN
     Dosage: (5-10ML OR 1-2 TEASPOONS), AS NEEDED
     Route: 048
  8. FENTANYL. [Concomitant]
     Active Substance: FENTANYL
     Dosage: 100 ?G, (EVERY 3 DAYS)
     Route: 061
  9. OXYCODONE/ APAP [Concomitant]
     Dosage: (OXYCODONE HYDROCHLORIDE 5 MG, PARACETAMOL 325 MG),[EVERY 4 HOURS]
     Route: 048
  10. TOVIAZ [Concomitant]
     Active Substance: FESOTERODINE FUMARATE
     Indication: BLADDER DISORDER
     Dosage: 4 MG, (TAKE IT IN THE EVENING OR AT BEDTIME)
  11. ALPRAZOLAM. [Concomitant]
     Active Substance: ALPRAZOLAM
     Indication: ANXIETY
     Dosage: 0.5 MG, 2X/DAY (AS NEEDED )
     Route: 048
  12. METFORMIN [Concomitant]
     Active Substance: METFORMIN HYDROCHLORIDE
     Dosage: 1000 MG, 2X/DAY (1 TAB BEFORE BREAKFAST AND 1 TABLET BEFORE SUPPER BY MOUTH)
     Route: 048
  13. PROPRANOLOL [Concomitant]
     Active Substance: PROPRANOLOL\PROPRANOLOL HYDROCHLORIDE
     Indication: MIGRAINE
     Dosage: 20 MG, 3X/DAY
  14. LYRICA [Suspect]
     Active Substance: PREGABALIN
     Dosage: 100 MG, 3X/DAY
     Route: 048
  15. SUMATRIPTAN. [Concomitant]
     Active Substance: SUMATRIPTAN
     Indication: MIGRAINE
     Dosage: 100 MG, (AT THE ON SIGHT OF MIGRAINES AND CAN BE REPEATED EVERY 2 HOURS )
  16. DEXILANT [Concomitant]
     Active Substance: DEXLANSOPRAZOLE
     Indication: ABDOMINAL DISCOMFORT
     Dosage: 60 MG, 1X/DAY ((1 CAPSULE BEFORE BREAKFAST)

REACTIONS (5)
  - Epistaxis [Recovering/Resolving]
  - Pain [Not Recovered/Not Resolved]
  - Contusion [Not Recovered/Not Resolved]
  - Tooth fracture [Not Recovered/Not Resolved]
  - Gingival bleeding [Not Recovered/Not Resolved]

NARRATIVE: CASE EVENT DATE: 2014
